FAERS Safety Report 13536634 (Version 2)
Quarter: 2017Q2

REPORT INFORMATION
  Report Type: Other
  Country: NO (occurrence: NO)
  Receive Date: 20170511
  Receipt Date: 20170608
  Transmission Date: 20170830
  Serious: Yes (Life-Threatening, Hospitalization)
  Sender: FDA-Public Use
  Company Number: NO-VERTEX PHARMACEUTICALS-2017-002401

PATIENT
  Age: 38 Year
  Sex: Male

DRUGS (8)
  1. INSULIN (HUMAN) [Concomitant]
     Indication: TYPE 1 DIABETES MELLITUS
     Dosage: 30 IU MORNING 25 IU EVENING
     Route: 051
  2. ATROVENT [Concomitant]
     Active Substance: IPRATROPIUM BROMIDE
     Dosage: 0.5 MG, 6 TIMES A DAY
     Route: 055
  3. ORKAMBI [Suspect]
     Active Substance: IVACAFTOR\LUMACAFTOR
     Indication: CYSTIC FIBROSIS
     Dosage: UNK
     Route: 048
     Dates: start: 20170322, end: 201703
  4. SODIUM CHLORIDE. [Concomitant]
     Active Substance: SODIUM CHLORIDE
     Indication: TYPE 1 DIABETES MELLITUS
     Dosage: 8-15 IU AT MEALS
     Route: 051
  5. VENTOLINE [Concomitant]
     Active Substance: ALBUTEROL
     Dosage: 5 MG, 6 TIMES A DAY
     Route: 055
  6. IPRATROPIUM BROMIDE. [Concomitant]
     Active Substance: IPRATROPIUM BROMIDE
  7. CREON [Concomitant]
     Active Substance: PANCRELIPASE AMYLASE\PANCRELIPASE LIPASE\PANCRELIPASE PROTEASE
     Indication: PANCREATIC FAILURE
     Dosage: 2-4 CAPSULES TO MEALS
     Route: 048
  8. SALBUTAMOL [Concomitant]
     Active Substance: ALBUTEROL
     Dosage: 4 ML X 4 P? ATOMIZER
     Route: 055

REACTIONS (6)
  - Respiratory distress [Recovering/Resolving]
  - Diarrhoea [Recovering/Resolving]
  - Obstructive airways disorder [Recovering/Resolving]
  - Pyrexia [Recovering/Resolving]
  - Headache [Recovering/Resolving]
  - Pneumonia pseudomonal [Recovering/Resolving]

NARRATIVE: CASE EVENT DATE: 20170325
